FAERS Safety Report 4998301-1 (Version None)
Quarter: 2006Q2

REPORT INFORMATION
  Report Type: 
  Country: None (occurrence: None)
  Receive Date: 20060508
  Receipt Date: 20060501
  Transmission Date: 20061013
  Serious: Yes (Death, Hospitalization, Other)
  Sender: FDA-Public Use
  Company Number: 163-21880-06030232

PATIENT
  Age: 89 Year
  Sex: Female

DRUGS (2)
  1. REVLIMID [Suspect]
     Indication: MYELODYSPLASTIC SYNDROME
     Dosage: 10 MG, QD, ORAL
     Route: 048
     Dates: start: 20060223, end: 20060301
  2. REVLIMID [Suspect]
     Indication: MYELODYSPLASTIC SYNDROME
     Dosage: 10 MG, QD, ORAL
     Route: 048
     Dates: start: 20060301

REACTIONS (7)
  - ANOREXIA [None]
  - DISORIENTATION [None]
  - FATIGUE [None]
  - HYPOXIA [None]
  - PLATELET COUNT DECREASED [None]
  - SKIN DISCOLOURATION [None]
  - THROMBOSIS [None]
